FAERS Safety Report 20524109 (Version 1)
Quarter: 2022Q1

REPORT INFORMATION
  Report Type: Report from Study
  Country: US (occurrence: US)
  Receive Date: 20220228
  Receipt Date: 20220228
  Transmission Date: 20220423
  Serious: No
  Sender: FDA-Public Use
  Company Number: US-HRARD-2021000894

PATIENT
  Age: 65 Year
  Sex: Male

DRUGS (14)
  1. METOPIRONE [Suspect]
     Active Substance: METYRAPONE
     Dosage: 02 CAPSULES TID
     Route: 048
     Dates: start: 20210608, end: 20210729
  2. Allopurinol 300 mg tab [Concomitant]
  3. AMLODIPINE [Concomitant]
     Active Substance: AMLODIPINE BESYLATE
  4. Spironolactone 100 mg tab [Concomitant]
  5. Fluconazole 200 mg tab [Concomitant]
  6. GABAPENTIN [Concomitant]
     Active Substance: GABAPENTIN
  7. Lisinopril 40 mg tab [Concomitant]
  8. ANORO ELLIPTA [Concomitant]
     Active Substance: UMECLIDINIUM BROMIDE\VILANTEROL TRIFENATATE
  9. ALBUTEROL [Concomitant]
     Active Substance: ALBUTEROL
  10. MIRALAX [Concomitant]
     Active Substance: POLYETHYLENE GLYCOL 3350
  11. Senna 8.6 mg tab [Concomitant]
  12. ASPIRIN [Concomitant]
     Active Substance: ASPIRIN
  13. NOVOLOG [Concomitant]
     Active Substance: INSULIN ASPART
  14. BASAGLAR KWIKPEN [Concomitant]
     Active Substance: INSULIN GLARGINE

REACTIONS (1)
  - Off label use [Recovered/Resolved]

NARRATIVE: CASE EVENT DATE: 20210608
